FAERS Safety Report 6462161-2 (Version None)
Quarter: 2009Q4

REPORT INFORMATION
  Report Type: 
  Country: None (occurrence: None)
  Receive Date: 20091130
  Receipt Date: 20091030
  Transmission Date: 20100525
  Serious: No
  Sender: FDA-Public Use
  Company Number: US-BAYER-200916460BCC

PATIENT
  Sex: Female
  Weight: 66 kg

DRUGS (4)
  1. ALEVE [Suspect]
     Indication: PAIN
     Dosage: TOTAL DAILY DOSE: 220 MG  UNIT DOSE: 220 MG
     Route: 048
  2. CENTRUM MULTI-VITAMIN [Concomitant]
     Route: 065
  3. ESTRADIOL [Concomitant]
     Route: 065
  4. GLUCOSAMINE CHONDROITIN [Concomitant]
     Route: 065

REACTIONS (3)
  - DIZZINESS [None]
  - MALAISE [None]
  - PAIN [None]
